FAERS Safety Report 19751347 (Version 1)
Quarter: 2021Q3

REPORT INFORMATION
  Report Type: Spontaneous
  Country: FR (occurrence: FR)
  Receive Date: 20210827
  Receipt Date: 20210827
  Transmission Date: 20211014
  Serious: Yes (Death)
  Sender: FDA-Public Use
  Company Number: FR-EMD SERONO-E2B_90084903

PATIENT
  Age: 90 Year
  Sex: Male

DRUGS (6)
  1. XARELTO [Suspect]
     Active Substance: RIVAROXABAN
     Indication: ARRHYTHMIA
     Route: 048
     Dates: start: 20210707, end: 20210707
  2. DOLIPRANE [Suspect]
     Active Substance: ACETAMINOPHEN
     Indication: WRONG PATIENT
     Route: 048
     Dates: start: 20210707, end: 20210707
  3. METFORMIN [Suspect]
     Active Substance: METFORMIN HYDROCHLORIDE
     Indication: WRONG PATIENT
     Route: 048
     Dates: start: 20210707, end: 20210707
  4. TAMSULOSIN [Suspect]
     Active Substance: TAMSULOSIN
     Indication: WRONG PATIENT
     Route: 048
     Dates: start: 20210707, end: 20210707
  5. ELIQUIS [Suspect]
     Active Substance: APIXABAN
     Indication: WRONG PATIENT
     Route: 048
     Dates: start: 20210707, end: 20210707
  6. RAMIPRIL. [Suspect]
     Active Substance: RAMIPRIL
     Indication: WRONG PATIENT
     Route: 048
     Dates: start: 20210707, end: 20210707

REACTIONS (2)
  - Death [Fatal]
  - Wrong patient received product [Recovered/Resolved]

NARRATIVE: CASE EVENT DATE: 20210707
